FAERS Safety Report 17077287 (Version 2)
Quarter: 2020Q1

REPORT INFORMATION
  Report Type: Spontaneous
  Country: BR (occurrence: BR)
  Receive Date: 20191126
  Receipt Date: 20200103
  Transmission Date: 20200409
  Serious: Yes (Hospitalization, Other)
  Sender: FDA-Public Use
  Company Number: BR-AMGEN-BRASP2018083339

PATIENT
  Age: 27 Year
  Sex: Female

DRUGS (1)
  1. ENBREL [Suspect]
     Active Substance: ETANERCEPT
     Indication: PRODUCT USED FOR UNKNOWN INDICATION
     Dosage: UNK
     Route: 065
     Dates: start: 201805, end: 201906

REACTIONS (8)
  - Pain [Unknown]
  - Malaise [Unknown]
  - Pyrexia [Unknown]
  - Injection site erythema [Not Recovered/Not Resolved]
  - Aspartate aminotransferase increased [Unknown]
  - Infection [Unknown]
  - Vomiting [Unknown]
  - Drug-induced liver injury [Unknown]
